FAERS Safety Report 11780264 (Version 1)
Quarter: 2015Q4

REPORT INFORMATION
  Report Type: Spontaneous
  Country: US (occurrence: US)
  Receive Date: 20151126
  Receipt Date: 20151126
  Transmission Date: 20160305
  Serious: No
  Sender: FDA-Public Use
  Company Number: US-JNJFOC-20151000437

PATIENT
  Age: 85 Year
  Sex: Female

DRUGS (1)
  1. TYLENOL EXTRA STRENGTH [Suspect]
     Active Substance: ACETAMINOPHEN
     Indication: PRODUCT USED FOR UNKNOWN INDICATION
     Dosage: 1 TABLET IN A.M., 1 TABLET IN P.M. AND 2 TABLETS AT BEDTIME
     Route: 048

REACTIONS (2)
  - Product quality issue [Unknown]
  - Product package associated injury [Unknown]
